FAERS Safety Report 6431717-5 (Version None)
Quarter: 2009Q4

REPORT INFORMATION
  Report Type: 
  Country: None (occurrence: None)
  Receive Date: 20091103
  Receipt Date: 20091019
  Transmission Date: 20100525
  Serious: Yes (Hospitalization)
  Sender: FDA-Public Use
  Company Number: 02100-JPN-07-0236

PATIENT
  Age: 68 Year
  Sex: Male
  Weight: 56 kg

DRUGS (6)
  1. PLETAL [Suspect]
     Indication: CEREBRAL INFARCTION
     Dosage: 100 MG, BID ORAL
     Route: 048
     Dates: start: 20060427, end: 20070507
  2. CANDESARTAN CILEXETIL [Concomitant]
  3. TENORMIN [Concomitant]
  4. LANSOPRAZOLE [Concomitant]
  5. ADALAT [Concomitant]
  6. DOXAZOSIN MESYLATE [Concomitant]

REACTIONS (8)
  - ATRIAL FIBRILLATION [None]
  - CARDIAC FAILURE [None]
  - CARDIOMEGALY [None]
  - DYSPNOEA [None]
  - MALAISE [None]
  - OEDEMA PERIPHERAL [None]
  - SWELLING FACE [None]
  - TACHYCARDIA [None]
